FAERS Safety Report 25862421 (Version 2)
Quarter: 2025Q4

REPORT INFORMATION
  Report Type: Spontaneous
  Country: GB (occurrence: GB)
  Receive Date: 20250930
  Receipt Date: 20251228
  Transmission Date: 20260117
  Serious: Yes (Other)
  Sender: IPSEN BIOPHARMACEUTICALS, INC.
  Company Number: GB-IPSEN Group, Research and Development-2025-23943

PATIENT
  Age: 89 Year
  Sex: Female

DRUGS (5)
  1. LANREOTIDE [Suspect]
     Active Substance: LANREOTIDE
     Indication: Neuroendocrine tumour
     Dosage: 120 MG, E28D (DEEP SUBCUTANEOUS)
     Route: 058
  2. LANREOTIDE [Suspect]
     Active Substance: LANREOTIDE
     Dosage: 120 MG, E28D (DEEP SUBCUTANEOUS)
     Route: 058
  3. LANREOTIDE [Suspect]
     Active Substance: LANREOTIDE
     Dosage: 120 MG, E28D (DEEP SUBCUTANEOUS)
     Route: 058
  4. LANREOTIDE [Suspect]
     Active Substance: LANREOTIDE
     Dosage: 120 MG, E28D (DEEP SUBCUTANEOUS)
     Route: 058
  5. LANREOTIDE [Suspect]
     Active Substance: LANREOTIDE
     Dosage: 120 MG, E28D (DEEP SUBCUTANEOUS) (L BUTTOCK)
     Route: 058

REACTIONS (13)
  - Pneumonia [Not Recovered/Not Resolved]
  - Headache [Recovered/Resolved]
  - Fatigue [Not Recovered/Not Resolved]
  - Feeling abnormal [Unknown]
  - Frequent bowel movements [Unknown]
  - Migraine [Unknown]
  - Malaise [Unknown]
  - Peripheral swelling [Unknown]
  - Hypertension [Unknown]
  - Abdominal pain upper [Recovering/Resolving]
  - Abdominal discomfort [Unknown]
  - Product availability issue [Unknown]
  - Pain [Unknown]

NARRATIVE: CASE EVENT DATE: 20240101
